FAERS Safety Report 5813408-4 (Version None)
Quarter: 2008Q3

REPORT INFORMATION
  Report Type: 
  Country: None (occurrence: None)
  Receive Date: 20080714
  Receipt Date: 20080707
  Transmission Date: 20090109
  Serious: Yes (Other)
  Sender: FDA-Public Use
  Company Number: 2008AL004409

PATIENT
  Sex: Female
  Weight: 95.2554 kg

DRUGS (5)
  1. DIGOXIN [Suspect]
     Dosage: 0.25MG, PO
     Route: 048
  2. BISOPROLOL FUMARATE [Concomitant]
  3. WARFARIN SODIUM [Concomitant]
  4. FASLODEX [Concomitant]
  5. AVAPRO [Concomitant]

REACTIONS (2)
  - DIZZINESS [None]
  - HEADACHE [None]
